FAERS Safety Report 6439412-3 (Version None)
Quarter: 2009Q4

REPORT INFORMATION
  Report Type: 
  Country: None (occurrence: None)
  Receive Date: 20091113
  Receipt Date: 20091105
  Transmission Date: 20100525
  Serious: Yes (Other)
  Sender: FDA-Public Use
  Company Number: US-JNJFOC-20091101171

PATIENT
  Sex: Female

DRUGS (1)
  1. DOXIL [Suspect]
     Indication: OVARIAN CANCER
     Route: 042

REACTIONS (5)
  - FATIGUE [None]
  - LIMB DISCOMFORT [None]
  - PALLOR [None]
  - STOMATITIS [None]
  - TUMOUR MARKER INCREASED [None]
